FAERS Safety Report 9007344 (Version 1)
Quarter: 2013Q1

REPORT INFORMATION
  Report Type: Spontaneous
  Country: US (occurrence: US)
  Receive Date: 20130110
  Receipt Date: 20130110
  Transmission Date: 20140127
  Serious: Yes (Death)
  Sender: FDA-Public Use
  Company Number: US-PFIZER INC-2013007946

PATIENT
  Age: 47 Year
  Sex: Male

DRUGS (2)
  1. SERTRALINE HCL [Suspect]
     Route: 048
  2. OLANZAPINE [Suspect]
     Route: 048

REACTIONS (1)
  - Completed suicide [Fatal]
